FAERS Safety Report 22270567 (Version 4)
Quarter: 2023Q4

REPORT INFORMATION
  Report Type: Spontaneous
  Country: US (occurrence: US)
  Receive Date: 20230501
  Receipt Date: 20231212
  Transmission Date: 20240110
  Serious: Yes (Other)
  Sender: FDA-Public Use
  Company Number: US-002147023-NVSC2023US094985

PATIENT
  Sex: Female

DRUGS (2)
  1. TAFINLAR [Suspect]
     Active Substance: DABRAFENIB MESYLATE
     Indication: Craniopharyngioma malignant
     Dosage: 150 MG, Q12H
     Route: 048
     Dates: start: 202303
  2. MEKINIST [Suspect]
     Active Substance: TRAMETINIB DIMETHYL SULFOXIDE
     Indication: Craniopharyngioma malignant
     Dosage: 2 MG, QD
     Route: 048
     Dates: start: 202303

REACTIONS (13)
  - Diabetes mellitus [Unknown]
  - Deafness [Unknown]
  - Impaired gastric emptying [Unknown]
  - Fatigue [Unknown]
  - Asthenia [Unknown]
  - Neoplasm [Unknown]
  - Vision blurred [Unknown]
  - Eye inflammation [Unknown]
  - Neuralgia [Unknown]
  - Vomiting [Unknown]
  - Muscle spasms [Unknown]
  - Dehydration [Unknown]
  - Product use in unapproved indication [Unknown]
